FAERS Safety Report 8135024-4 (Version None)
Quarter: 2012Q1

REPORT INFORMATION
  Report Type: 
  Country: None (occurrence: None)
  Receive Date: 20120214
  Receipt Date: 20120206
  Transmission Date: 20120608
  Serious: Yes (Hospitalization)
  Sender: FDA-Public Use
  Company Number: JP-JNJFOC-20120206051

PATIENT
  Sex: Female

DRUGS (14)
  1. LEVOFLOXACIN [Suspect]
     Indication: PHARYNGITIS
     Route: 048
     Dates: start: 20120122, end: 20120130
  2. PLAVIX [Concomitant]
     Indication: MYOCARDIAL INFARCTION
     Route: 048
  3. PREDNISOLONE [Concomitant]
     Indication: DRUG HYPERSENSITIVITY
     Route: 048
  4. LANSOPRAZOLE [Concomitant]
     Indication: RENAL FAILURE CHRONIC
     Route: 048
  5. CALCIUM CARBONATE [Concomitant]
     Indication: RENAL FAILURE CHRONIC
     Route: 048
  6. SIGMART [Concomitant]
     Indication: MYOCARDIAL INFARCTION
     Route: 048
  7. LEVOFLOXACIN [Suspect]
     Indication: LYMPHADENITIS
     Route: 048
     Dates: start: 20120122, end: 20120130
  8. SIGMART [Concomitant]
     Indication: CARDIAC FAILURE
     Route: 048
  9. SOLANTAL [Concomitant]
     Indication: CARDIAC FAILURE
     Route: 048
  10. OPALMON [Concomitant]
     Indication: RENAL FAILURE CHRONIC
     Route: 048
  11. PLETAL [Concomitant]
     Indication: MYOCARDIAL INFARCTION
     Route: 048
  12. NOVOLIN R [Concomitant]
     Indication: DIABETES MELLITUS
     Route: 058
  13. URSO 250 [Concomitant]
     Indication: RENAL FAILURE CHRONIC
     Route: 048
  14. DIOVAN [Concomitant]
     Indication: HYPERTENSION
     Route: 048

REACTIONS (2)
  - DYSKINESIA [None]
  - MUSCULAR WEAKNESS [None]
